FAERS Safety Report 8310501-1 (Version None)
Quarter: 2012Q2

REPORT INFORMATION
  Report Type: 
  Country: None (occurrence: None)
  Receive Date: 20120425
  Receipt Date: 20120410
  Transmission Date: 20120825
  Serious: Yes (Death, Other)
  Sender: FDA-Public Use
  Company Number: FR-ROCHE-1059123

PATIENT

DRUGS (3)
  1. PEGASYS [Suspect]
     Indication: HEPATITIS C
     Dosage: 24 WEEKS
  2. COPEGUS [Suspect]
     Indication: HEPATITIS C
     Dosage: 24 WEEKS
  3. DACLATASVIR [Suspect]
     Indication: HEPATITIS C
     Dosage: 24 WEEKS

REACTIONS (2)
  - METABOLIC ACIDOSIS [None]
  - PANCYTOPENIA [None]
